FAERS Safety Report 7630678-0 (Version None)
Quarter: 2011Q3

REPORT INFORMATION
  Report Type: 
  Country: None (occurrence: None)
  Receive Date: 20110722
  Receipt Date: 20110713
  Transmission Date: 20111222
  Serious: Yes (Other)
  Sender: FDA-Public Use
  Company Number: CN-ASTRAZENECA-2011SE41579

PATIENT
  Age: 40 Year
  Sex: Male
  Weight: 85 kg

DRUGS (5)
  1. LIDOCAINE [Suspect]
     Route: 058
  2. LIDOCAINE [Suspect]
     Route: 053
  3. LIDOCAINE [Suspect]
     Route: 058
  4. LIDOCAINE [Suspect]
     Dosage: RECHALLENGE (SKIN TEST) WITH LIDOCAINE 0.02 %, 0.2%, 2 %
     Route: 058
  5. LIDOCAINE [Suspect]
     Route: 053

REACTIONS (5)
  - CHEST DISCOMFORT [None]
  - BREATH SOUNDS ABNORMAL [None]
  - DYSPNOEA [None]
  - ANAPHYLACTIC REACTION [None]
  - URTICARIA [None]
